FAERS Safety Report 8818583 (Version 2)
Quarter: 2012Q4

REPORT INFORMATION
  Report Type: 
  Country: GB (occurrence: GB)
  Receive Date: 20121001
  Receipt Date: 20121001
  Transmission Date: 20130627
  Serious: Yes (Hospitalization, Other)
  Sender: FDA-Public Use
  Company Number: GB-PFIZER INC-2012236183

PATIENT
  Age: 75 Year
  Sex: Female

DRUGS (5)
  1. CITALOPRAM [Suspect]
     Indication: ANTIDEPRESSANT THERAPY
     Dosage: UNK
  2. TRAMADOL HCL [Suspect]
     Dosage: UNK
  3. ONDANSETRON [Suspect]
     Dosage: 4 mg, UNK
  4. METHYLENE BLUE [Suspect]
     Dosage: 5.5 mg/kg in 300 mL of 0.9% sodium chloride
     Route: 042
  5. FENTANYL [Suspect]
     Indication: ANALGESIC THERAPY
     Dosage: 150 ug, UNK

REACTIONS (3)
  - Respiratory distress [Recovered/Resolved]
  - Serotonin syndrome [Recovered/Resolved]
  - Drug interaction [Recovered/Resolved]
